FAERS Safety Report 17517563 (Version 2)
Quarter: 2020Q1

REPORT INFORMATION
  Report Type: Report from Study
  Country: US (occurrence: US)
  Receive Date: 20200309
  Receipt Date: 20200319
  Transmission Date: 20200409
  Serious: Yes (Hospitalization)
  Sender: FDA-Public Use
  Company Number: US-JNJFOC-20200241975

PATIENT
  Age: 19 Year
  Sex: Male
  Weight: 80.8 kg

DRUGS (4)
  1. INFLIXIMAB, RECOMBINANT [Suspect]
     Active Substance: INFLIXIMAB
     Indication: INFLAMMATORY BOWEL DISEASE
     Route: 042
     Dates: start: 20130905
  2. EMLA [Concomitant]
     Active Substance: LIDOCAINE\PRILOCAINE
  3. LORATADINE. [Concomitant]
     Active Substance: LORATADINE
  4. HUMIRA [Concomitant]
     Active Substance: ADALIMUMAB
     Dates: start: 20190718

REACTIONS (1)
  - Crohn^s disease [Recovered/Resolved]

NARRATIVE: CASE EVENT DATE: 20200113
